FAERS Safety Report 4331388-8 (Version None)
Quarter: 2004Q1

REPORT INFORMATION
  Report Type: 
  Country: None (occurrence: None)
  Receive Date: 20040329
  Receipt Date: 20040318
  Transmission Date: 20041129
  Serious: Yes (Other)
  Sender: FDA-Public Use
  Company Number: 2004-03-1364

PATIENT
  Sex: 0

DRUGS (1)
  1. PEG-INTERFERON ALFA-2B INJECTABLE POWDER [Suspect]
     Dosage: SUBCUTANEOUS
     Route: 058

REACTIONS (2)
  - HAEMORRHAGE [None]
  - THROMBOCYTOPENIA [None]
